FAERS Safety Report 8927924 (Version 1)
Quarter: 2012Q4

REPORT INFORMATION
  Report Type: Spontaneous
  Country: US (occurrence: None)
  Receive Date: 20121126
  Receipt Date: 20121126
  Transmission Date: 20130627
  Serious: Yes (Hospitalization)
  Sender: FDA-Public Use
  Company Number: None

PATIENT
  Age: 52 Year
  Sex: Male
  Weight: 95.5 kg

DRUGS (1)
  1. CEPHALEXIN [Suspect]
     Indication: SURGERY
     Route: 048
     Dates: start: 20121001, end: 20121016

REACTIONS (4)
  - Angioedema [None]
  - Erythema multiforme [None]
  - Rash [None]
  - Urticaria [None]
